FAERS Safety Report 4432811-0 (Version None)
Quarter: 2004Q3

REPORT INFORMATION
  Report Type: 
  Country: None (occurrence: None)
  Receive Date: 20040823
  Receipt Date: 20040811
  Transmission Date: 20050211
  Serious: Yes (Hospitalization)
  Sender: FDA-Public Use
  Company Number: 2004218807JP

PATIENT
  Age: 3 Year
  Sex: Female
  Weight: 15 kg

DRUGS (7)
  1. SOLU-CORTEF [Suspect]
     Indication: ACUTE LYMPHOCYTIC LEUKAEMIA
     Dosage: 25 MG, SINGLE, EPIDURAL
     Route: 008
     Dates: start: 19991025, end: 19991025
  2. SOLU-CORTEF [Suspect]
     Indication: ACUTE LYMPHOCYTIC LEUKAEMIA
     Dosage: 25 MG, SINGLE, EPIDURAL
     Route: 008
     Dates: start: 19991220, end: 19991220
  3. CYTOSAR-U [Suspect]
     Indication: ACUTE LYMPHOCYTIC LEUKAEMIA
     Dosage: 2400 MG,  QD, IV DRIP
     Route: 041
     Dates: start: 19991220, end: 19991224
  4. METHOTREXATE [Concomitant]
  5. LEUNASE [Concomitant]
  6. KYTRIL        (GANISETRON) [Concomitant]
  7. SOLU-MEDROL [Concomitant]

REACTIONS (2)
  - PANCYTOPENIA [None]
  - STREPTOCOCCAL SEPSIS [None]
